FAERS Safety Report 11658941 (Version 2)
Quarter: 2015Q4

REPORT INFORMATION
  Report Type: Spontaneous
  Country: DK (occurrence: DK)
  Receive Date: 20151026
  Receipt Date: 20151030
  Transmission Date: 20160304
  Serious: Yes (Other)
  Sender: FDA-Public Use
  Company Number: CHPA2015DK012289

PATIENT
  Sex: Female

DRUGS (1)
  1. NICOTINELL FRUIT NICOTINE GUM [Suspect]
     Active Substance: NICOTINE
     Indication: SMOKING CESSATION THERAPY
     Dosage: UNK
     Route: 065
     Dates: start: 2012

REACTIONS (2)
  - Incorrect drug administration duration [Unknown]
  - Drug dependence [Unknown]
